FAERS Safety Report 16090463 (Version 1)
Quarter: 2019Q1

REPORT INFORMATION
  Report Type: Spontaneous
  Country: US (occurrence: US)
  Receive Date: 20190215
  Receipt Date: 20190215
  Transmission Date: 20190418
  Serious: No
  Sender: FDA-Public Use
  Company Number: None

PATIENT
  Age: 63 Year
  Sex: Female
  Weight: 99.79 kg

DRUGS (2)
  1. OTREXUP [Suspect]
     Active Substance: METHOTREXATE
     Indication: RHEUMATOID ARTHRITIS
     Route: 058
     Dates: start: 201805
  2. OTREXUP [Suspect]
     Active Substance: METHOTREXATE
     Indication: BONE DENSITY ABNORMAL
     Route: 058
     Dates: start: 201805

REACTIONS (3)
  - Knee arthroplasty [None]
  - Therapy cessation [None]
  - Impaired healing [None]
